FAERS Safety Report 8585322-5 (Version None)
Quarter: 2012Q3

REPORT INFORMATION
  Report Type: 
  Country: None (occurrence: None)
  Receive Date: 20120810
  Receipt Date: 20120806
  Transmission Date: 20120928
  Serious: Yes (Death)
  Sender: FDA-Public Use
  Company Number: FR-PFIZER INC-2012190164

PATIENT
  Age: 66 Year
  Sex: Male

DRUGS (18)
  1. SOLU-MEDROL [Suspect]
     Indication: IMMUNOSUPPRESSION
     Dosage: VARIABLE DOSE
     Route: 042
  2. PLITICAN [Suspect]
     Indication: PROPHYLAXIS
     Dosage: VARIABLE DOSE
     Route: 042
     Dates: start: 20120314, end: 20120319
  3. BACTRIM DS [Suspect]
     Indication: PROPHYLAXIS
     Dosage: 1 DF, 1X/DAY
     Route: 048
     Dates: end: 20120405
  4. EFFEXOR XR [Suspect]
     Dosage: VARIABLE DOSE
     Route: 048
     Dates: start: 20120313, end: 20120322
  5. ALBUMIN (HUMAN) [Suspect]
     Dosage: 20 G DAILY
     Route: 042
     Dates: end: 20120306
  6. ZOLPIDEM TARTRATE [Suspect]
     Indication: INSOMNIA
     Dosage: 1 DOSAGE FORM (DF) DAILY
     Route: 048
     Dates: end: 20120318
  7. FOLIC ACID [Suspect]
     Indication: VITAMIN B12 DEFICIENCY
     Dosage: 5 (UNSPECIFIED UNIT) DAILY
     Dates: end: 20120405
  8. NICARDIPINE HCL [Suspect]
     Indication: HYPERTENSION
     Dosage: 1 DF DAILY
     Route: 048
     Dates: end: 20120415
  9. VALGANCICLOVIR [Suspect]
     Indication: PROPHYLAXIS
     Dosage: 900 MG DAILY
     Route: 048
     Dates: start: 20120310, end: 20120316
  10. SANDIMMUNE [Suspect]
     Indication: PROPHYLAXIS
     Dosage: VARIABLE DOSE
     Route: 042
     Dates: start: 20120123, end: 20120404
  11. PHENOXYMETHYL PENICILLIN [Suspect]
     Indication: PROPHYLAXIS
     Dosage: 2 MIU DAILY
     Route: 048
     Dates: end: 20120322
  12. TRANXENE [Suspect]
     Indication: ANXIETY
     Dosage: VARIABLE DOSE
     Route: 048
     Dates: start: 20120313, end: 20120316
  13. DELURSAN [Suspect]
     Indication: CHOLESTASIS
     Dosage: 1.5 G DAILY
     Route: 048
  14. OMEPRAZOLE [Suspect]
     Indication: PROPHYLAXIS
     Dosage: VARIABLE DOSE
     Route: 042
  15. LEVOTHYROXINE SODIUM [Suspect]
     Indication: HYPOTHYROIDISM
     Dosage: 150 UG DAILY
     Route: 042
  16. VFEND [Suspect]
     Indication: PROPHYLAXIS
     Dosage: 400 (UNSPECIFIED UNIT) DAILY
     Route: 042
  17. HEPARIN CALCIUM [Suspect]
     Indication: PROPHYLAXIS
     Dosage: 7500 (UNSPECIFIED UNIT) DAILY
     Route: 042
     Dates: end: 20120321
  18. TIORFAN [Suspect]
     Indication: DIARRHOEA
     Dosage: 600 MG DAILY
     Route: 048
     Dates: end: 20120425

REACTIONS (1)
  - THROMBOTIC MICROANGIOPATHY [None]
